FAERS Safety Report 6399956-X (Version None)
Quarter: 2009Q4

REPORT INFORMATION
  Report Type: 
  Country: None (occurrence: None)
  Receive Date: 20091008
  Receipt Date: 20091008
  Transmission Date: 20100525
  Serious: Yes (Other)
  Sender: FDA-Public Use
  Company Number: None

PATIENT
  Age: 10 Year
  Sex: Female
  Weight: 32.2 kg

DRUGS (1)
  1. INFLIXIMAB CENTOCOR [Suspect]
     Indication: CROHN'S DISEASE
     Dosage: 200 MG EVERY 8 WEEKS IV DRIP
     Route: 041
     Dates: start: 20090401, end: 20090902

REACTIONS (2)
  - HEPATITIS [None]
  - LIVER INJURY [None]
